FAERS Safety Report 6122616-7 (Version None)
Quarter: 2009Q1

REPORT INFORMATION
  Report Type: 
  Country: None (occurrence: None)
  Receive Date: 20090316
  Receipt Date: 20090302
  Transmission Date: 20090719
  Serious: Yes (Other)
  Sender: FDA-Public Use
  Company Number: 1000005108

PATIENT
  Age: 43 Year
  Sex: Female
  Weight: 50 kg

DRUGS (6)
  1. ESCITALOPRAM [Suspect]
     Dosage: 20 MG (20 MG,1 IN 1 D,),ORAL
     Route: 048
     Dates: start: 20080901, end: 20081101
  2. ESCITALOPRAM [Suspect]
     Dosage: 10 MG (10 MG,1 IN 1 D),ORAL
     Route: 048
     Dates: start: 20081101
  3. LAMOTRIGINE (TABLETS) [Concomitant]
  4. ZYPREXA [Concomitant]
  5. VALIUM [Concomitant]
  6. PRIADEL (TABLETS) [Concomitant]

REACTIONS (2)
  - DRUG INTERACTION [None]
  - LEUKOPENIA [None]
